FAERS Safety Report 10475907 (Version 2)
Quarter: 2014Q3

REPORT INFORMATION
  Report Type: Report from Study
  Country: CA (occurrence: CA)
  Receive Date: 20140925
  Receipt Date: 20140925
  Transmission Date: 20150326
  Serious: Yes (Other)
  Sender: FDA-Public Use
  Company Number: PHHY2014CA120848

PATIENT
  Age: 51 Year
  Sex: Male

DRUGS (7)
  1. EPIVAL [Concomitant]
     Active Substance: DIVALPROEX SODIUM
     Dosage: 500 UKN, TID
  2. CLOZARIL [Suspect]
     Active Substance: CLOZAPINE
     Route: 048
     Dates: start: 20140911, end: 20140915
  3. EPIVAL [Concomitant]
     Active Substance: DIVALPROEX SODIUM
     Dates: start: 20140916
  4. OLANZAPINE. [Concomitant]
     Active Substance: OLANZAPINE
     Dosage: 5 UKN, BID
  5. CLOZARIL [Suspect]
     Active Substance: CLOZAPINE
     Indication: SCHIZOPHRENIA
     Dosage: 50 UKN, DAILY
     Route: 048
     Dates: start: 20140806, end: 20140915
  6. CLOZARIL [Suspect]
     Active Substance: CLOZAPINE
     Dosage: 250 UKN, DAILY
     Route: 048
  7. INVEGA [Concomitant]
     Active Substance: PALIPERIDONE
     Dosage: UNK
     Route: 030

REACTIONS (9)
  - Muscular weakness [Recovering/Resolving]
  - Saccadic eye movement [Unknown]
  - General physical health deterioration [Unknown]
  - Decreased appetite [Recovering/Resolving]
  - Influenza like illness [Recovering/Resolving]
  - Fatigue [Recovering/Resolving]
  - Diarrhoea [Recovering/Resolving]
  - Fall [Recovering/Resolving]
  - Dyskinesia [Recovering/Resolving]

NARRATIVE: CASE EVENT DATE: 20140815
